FAERS Safety Report 13352543 (Version 1)
Quarter: 2017Q1

REPORT INFORMATION
  Report Type: Spontaneous
  Country: US (occurrence: US)
  Receive Date: 20170320
  Receipt Date: 20170320
  Transmission Date: 20170429
  Serious: No
  Sender: FDA-Public Use
  Company Number: US-ALLERGAN-1641445US

PATIENT
  Sex: Female

DRUGS (1)
  1. OXYTROL [Suspect]
     Active Substance: OXYBUTYNIN
     Indication: BLADDER DISORDER
     Dosage: UNK
     Route: 062
     Dates: start: 2014, end: 20160306

REACTIONS (2)
  - Product packaging quantity issue [Unknown]
  - Drug ineffective [Unknown]
